FAERS Safety Report 5711902-8 (Version None)
Quarter: 2008Q2

REPORT INFORMATION
  Report Type: 
  Country: None (occurrence: None)
  Receive Date: 20080421
  Receipt Date: 20080409
  Transmission Date: 20081010
  Serious: Yes (Other)
  Sender: FDA-Public Use
  Company Number: JP-PFIZER INC-2008033348

PATIENT
  Age: 79 Year
  Sex: Female

DRUGS (6)
  1. ZYVOX [Suspect]
     Indication: STAPHYLOCOCCAL INFECTION
     Dosage: DAILY DOSE:1200MG
     Route: 048
     Dates: start: 20080322, end: 20080327
  2. TAZOCIN [Concomitant]
  3. PENICILLIN G [Concomitant]
  4. CEPHALOSPORINS AND RELATED SUBSTANCES [Concomitant]
  5. CIPROFLOXACIN [Concomitant]
  6. MEROPEN [Concomitant]

REACTIONS (2)
  - AGEUSIA [None]
  - GASTROENTERITIS STAPHYLOCOCCAL [None]
